FAERS Safety Report 5673837-9 (Version None)
Quarter: 2008Q2

REPORT INFORMATION
  Report Type: 
  Country: None (occurrence: None)
  Receive Date: 20080226
  Receipt Date: 20070413
  Transmission Date: 20081010
  Serious: Yes (Other)
  Sender: FDA-Public Use
  Company Number: 493033

PATIENT
  Age: 47 Year
  Sex: Female
  Weight: 136.1 kg

DRUGS (8)
  1. ACCUTANE [Suspect]
     Indication: ACNE
     Dosage: 40 MG 1 PER DAY ORAL
     Route: 048
     Dates: start: 20051115, end: 20061218
  2. ACCUTANE [Suspect]
     Indication: ROSACEA
     Dosage: 40 MG 1 PER DAY ORAL
     Route: 048
     Dates: start: 20051115, end: 20061218
  3. AMNESTEEM [Suspect]
     Indication: ACNE
     Dosage: 40 MG 1 PER DAY ORAL
     Route: 048
     Dates: start: 20060913
  4. AMNESTEEM [Suspect]
     Indication: ROSACEA
     Dosage: 40 MG 1 PER DAY ORAL
     Route: 048
     Dates: start: 20060913
  5. CLARAVIS [Suspect]
     Indication: ACNE
     Dosage: 40 MG 2 PER DAY ORAL
     Route: 048
     Dates: start: 20061013
  6. CLARAVIS [Suspect]
     Indication: ROSACEA
     Dosage: 40 MG 2 PER DAY ORAL
     Route: 048
     Dates: start: 20061013
  7. TRAZODONE (TRAZODONE HYDROCHLORIDE) [Concomitant]
  8. HYDROCHLOROTHIAZIDE [Concomitant]

REACTIONS (1)
  - BLOOD TRIGLYCERIDES INCREASED [None]
